FAERS Safety Report 9612009 (Version 1)
Quarter: 2013Q4

REPORT INFORMATION
  Report Type: Report from Study
  Country: DE (occurrence: DE)
  Receive Date: 20131010
  Receipt Date: 20131010
  Transmission Date: 20140711
  Serious: Yes (Hospitalization)
  Sender: FDA-Public Use
  Company Number: DE-JNJFOC-20131002237

PATIENT
  Age: 62 Year
  Sex: Female
  Weight: 73 kg

DRUGS (16)
  1. REMICADE [Suspect]
     Indication: PRODUCT USED FOR UNKNOWN INDICATION
     Route: 042
     Dates: start: 200009
  2. ROXITHROMYCIN [Concomitant]
     Route: 048
     Dates: start: 20130402, end: 20130406
  3. ASS [Concomitant]
     Route: 048
     Dates: start: 20130311
  4. ATORVASTATIN [Concomitant]
     Route: 048
     Dates: start: 20130311
  5. ATORVASTATIN [Concomitant]
     Route: 048
  6. PANTOZOL [Concomitant]
     Route: 065
  7. VOLTAREN RETARD [Concomitant]
     Dosage: AS NEEDED??PREVIOUSLY STOPPED ON 16-APR-2013 AND ONGOING AT LAST VISIT
     Route: 048
  8. OMEPRAZOLE [Concomitant]
     Dosage: AS NEEDED
     Route: 048
  9. AMLODIPINE [Concomitant]
     Route: 048
     Dates: start: 20130311, end: 20130611
  10. AMLODIPINE [Concomitant]
     Dosage: PREVIOUSLY STOPPED ON 10-MAR-2013 AND ONGOING AT LAST VISIT.
     Route: 048
     Dates: start: 20111215
  11. DOXYCYCLINE [Concomitant]
     Dosage: OTHER
     Route: 048
     Dates: start: 20120202, end: 20120211
  12. DOXYCYCLINE [Concomitant]
     Dosage: OTHER
     Route: 048
     Dates: start: 20120305, end: 20120310
  13. DOXYCYCLINE [Concomitant]
     Route: 048
     Dates: start: 20121212, end: 20121217
  14. DOXYCYCLINE [Concomitant]
     Route: 048
     Dates: start: 20130212, end: 20130217
  15. VALSARTAN/HYDROCHLOORTHIAZIDE [Concomitant]
     Dosage: 80/62.5 MG
     Route: 048
     Dates: start: 20130611, end: 20130614
  16. VALSARTAN/HYDROCHLOORTHIAZIDE [Concomitant]
     Dosage: 80/62.5 MG
     Route: 048
     Dates: start: 20120614

REACTIONS (8)
  - Transient ischaemic attack [Recovered/Resolved with Sequelae]
  - Gastroenteritis norovirus [Recovered/Resolved]
  - Bronchitis [Recovered/Resolved]
  - Hypertension [Not Recovered/Not Resolved]
  - Tendon disorder [Not Recovered/Not Resolved]
  - Periodontitis [Recovered/Resolved]
  - Nasopharyngitis [Recovered/Resolved]
  - Inflammation [Recovered/Resolved]
